FAERS Safety Report 10643526 (Version 6)
Quarter: 2015Q1

REPORT INFORMATION
  Report Type: Report from Study
  Country: GB (occurrence: GB)
  Receive Date: 20141210
  Receipt Date: 20150216
  Transmission Date: 20150720
  Serious: Yes (Life-Threatening, Hospitalization)
  Sender: FDA-Public Use
  Company Number: GB-ALEXION PHARMACEUTICALS INC.-A201404592

PATIENT

DRUGS (3)
  1. SOLIRIS [Suspect]
     Active Substance: ECULIZUMAB
     Indication: PAROXYSMAL NOCTURNAL HAEMOGLOBINURIA
     Dosage: 1200 MG, Q2W
     Route: 042
  2. SOLIRIS [Suspect]
     Active Substance: ECULIZUMAB
     Dosage: 1200 MG, Q2W
     Route: 042
  3. GABAPENTIN. [Concomitant]
     Active Substance: GABAPENTIN
     Indication: NECK PAIN
     Dosage: UNK
     Route: 048

REACTIONS (12)
  - Pain in extremity [Unknown]
  - Dysgeusia [Recovered/Resolved]
  - Muscle disorder [Unknown]
  - Coagulopathy [Unknown]
  - Infusion site bruising [Unknown]
  - Infection [Unknown]
  - Poor venous access [Unknown]
  - Chest pain [Unknown]
  - Infusion site swelling [Unknown]
  - Paraesthesia [Unknown]
  - Chest pain [Recovering/Resolving]
  - Incorrect dose administered [Unknown]

NARRATIVE: CASE EVENT DATE: 201411
